FAERS Safety Report 7165793-1 (Version None)
Quarter: 2010Q4

REPORT INFORMATION
  Report Type: 
  Country: None (occurrence: None)
  Receive Date: 20101215
  Receipt Date: 20100104
  Transmission Date: 20110411
  Serious: No
  Sender: FDA-Public Use
  Company Number: US-AMGEN-KDL383540

PATIENT

DRUGS (16)
  1. ENBREL [Suspect]
     Indication: PSORIASIS
  2. NIASPAN [Suspect]
     Dosage: 500 MG, QD
     Route: 048
     Dates: start: 20091025
  3. PAROXETINE HYDROCHLORIDE [Concomitant]
     Dosage: 20 MG, UNK
     Route: 048
  4. SIMVASTATIN [Concomitant]
     Dosage: 10 MG, QD
     Route: 048
  5. FISH OIL [Concomitant]
     Dosage: 1200 MG, QD
  6. ERGOCALCIFEROL [Concomitant]
     Dosage: UNK UNK, QD
  7. CALCIUM GLUBIONATE [Concomitant]
     Dosage: UNK UNK, QD
     Route: 048
  8. FOLIC ACID [Concomitant]
     Dosage: UNK UNK, QD
     Route: 048
  9. ASPIRIN [Concomitant]
     Dosage: UNK UNK, QD
     Route: 048
  10. LEVOTHYROXINE SODIUM [Concomitant]
     Dosage: UNK UNK, QD
     Route: 048
  11. METHOTREXATE [Concomitant]
     Dosage: 2.5 MG, QWK
     Route: 048
  12. VALSARTAN [Concomitant]
     Dosage: UNK UNK, QD
     Route: 048
  13. ISOSORBIDE DINITRATE [Concomitant]
     Dosage: UNK UNK, QD
     Route: 048
  14. GLIPIZIDE [Concomitant]
     Dosage: 10 MG, QD
     Route: 048
  15. CARVEDILOL [Concomitant]
     Dosage: UNK UNK, QD
     Route: 048
  16. CLOPIDOGREL [Concomitant]
     Dosage: 75 MG, UNK
     Route: 048

REACTIONS (2)
  - FEELING HOT [None]
  - PSORIASIS [None]
